FAERS Safety Report 5259580-9 (Version None)
Quarter: 2007Q1

REPORT INFORMATION
  Report Type: 
  Country: None (occurrence: None)
  Receive Date: 20070306
  Receipt Date: 20070223
  Transmission Date: 20070707
  Serious: Yes (Death)
  Sender: FDA-Public Use
  Company Number: 236703

PATIENT
  Sex: Male

DRUGS (5)
  1. MABTHERA (RITUXIMAB) CONC FOR SOLUTION FOR INFUSION [Suspect]
     Dates: start: 20050708
  2. GANCICLOVIR [Suspect]
     Dates: start: 20050701, end: 20050721
  3. BACTRIM [Concomitant]
  4. CIPROFLOXACIN [Concomitant]
  5. DIFLUCAN [Concomitant]

REACTIONS (11)
  - ASPERGILLOSIS [None]
  - BLOOD CULTURE POSITIVE [None]
  - DIALYSIS [None]
  - DRUG TOXICITY [None]
  - ESCHERICHIA INFECTION [None]
  - FEBRILE NEUTROPENIA [None]
  - GASTROINTESTINAL HAEMORRHAGE [None]
  - MULTI-ORGAN FAILURE [None]
  - RENAL FAILURE [None]
  - SHOCK [None]
  - SPUTUM CULTURE POSITIVE [None]
